FAERS Safety Report 9520670 (Version 1)
Quarter: 2013Q3

REPORT INFORMATION
  Report Type: Spontaneous
  Country: ES (occurrence: ES)
  Receive Date: 20130913
  Receipt Date: 20130913
  Transmission Date: 20140515
  Serious: Yes (Hospitalization, Other)
  Sender: FDA-Public Use
  Company Number: ES-ASTRAZENECA-2013SE67769

PATIENT
  Age: 78 Year
  Sex: Female

DRUGS (10)
  1. TENORMIN [Suspect]
     Indication: ATRIAL FIBRILLATION
     Route: 048
     Dates: start: 201201, end: 20130117
  2. AMLODIPINE [Interacting]
     Indication: HYPERTENSION
     Route: 048
     Dates: start: 2007, end: 20130117
  3. IRBESARTAN [Interacting]
     Indication: HYPERTENSION
     Route: 048
     Dates: start: 201201, end: 20130117
  4. AMERIDE [Interacting]
     Indication: HYPERTENSION
     Dosage: 5 MG/50 MG, 1 DF DAILY
     Route: 048
     Dates: start: 2007, end: 20130117
  5. UROMIL [Interacting]
     Route: 048
     Dates: start: 20130102, end: 20130117
  6. CLOPIDOGREL [Concomitant]
     Indication: ATRIAL FIBRILLATION
     Route: 048
     Dates: end: 20130117
  7. ATORVASTATIN [Concomitant]
     Indication: DYSLIPIDAEMIA
     Route: 048
     Dates: start: 2007
  8. METFORMINE [Concomitant]
     Indication: TYPE 2 DIABETES MELLITUS
     Route: 048
     Dates: start: 2007, end: 20130117
  9. DEXKETOPROFEN [Concomitant]
     Indication: PAIN
     Route: 042
     Dates: start: 20121229, end: 20130102
  10. PARACETAMOL [Concomitant]
     Indication: PAIN
     Route: 042
     Dates: start: 20120129, end: 20130102

REACTIONS (14)
  - Drug interaction [Unknown]
  - Renal failure acute [Recovered/Resolved]
  - Ejection fraction decreased [Unknown]
  - Ventricular hypokinesia [Unknown]
  - Mitral valve incompetence [Unknown]
  - Tricuspid valve incompetence [Unknown]
  - Type 2 diabetes mellitus [Unknown]
  - Dyslipidaemia [Unknown]
  - Hypertension [Unknown]
  - Atrial fibrillation [Unknown]
  - Pain [Unknown]
  - Renal cyst [Unknown]
  - Cholelithiasis [Unknown]
  - Drug effect incomplete [Unknown]
